FAERS Safety Report 9370590 (Version 2)
Quarter: 2013Q3

REPORT INFORMATION
  Report Type: Spontaneous
  Country: TR (occurrence: TR)
  Receive Date: 20130626
  Receipt Date: 20130702
  Transmission Date: 20140515
  Serious: Yes (Hospitalization)
  Sender: FDA-Public Use
  Company Number: TR-PFIZER INC-2013188084

PATIENT
  Age: 45 Year
  Sex: Male

DRUGS (3)
  1. AMLODIPINE BESILATE [Suspect]
     Indication: SUICIDE ATTEMPT
     Dosage: 20 MG, UNK
  2. NAPROXEN SODIUM [Suspect]
     Indication: SUICIDE ATTEMPT
     Dosage: 2200 MG, UNK
  3. COLCHICINE [Suspect]
     Indication: SUICIDE ATTEMPT
     Dosage: 5 MG, UNK

REACTIONS (1)
  - Suicide attempt [Unknown]
